FAERS Safety Report 11398974 (Version 1)
Quarter: 2015Q3

REPORT INFORMATION
  Report Type: Spontaneous
  Country: US (occurrence: US)
  Receive Date: 20150820
  Receipt Date: 20150820
  Transmission Date: 20151125
  Serious: Yes (Other)
  Sender: FDA-Public Use
  Company Number: US-B.I. PHARMACEUTICALS,INC./RIDGEFIELD-2015-BI-44732BP

PATIENT
  Sex: Male
  Weight: 77 kg

DRUGS (1)
  1. COMBIVENT [Suspect]
     Active Substance: ALBUTEROL SULFATE\IPRATROPIUM BROMIDE
     Indication: CHRONIC OBSTRUCTIVE PULMONARY DISEASE
     Dosage: DOSE PER APPLICATION: 20 MCG / 100 MCG; DAILY DOSE: 2 PUFFS 2 TO 3 TIMES A DAY
     Route: 055

REACTIONS (4)
  - Muscular weakness [Not Recovered/Not Resolved]
  - Myocardial infarction [Unknown]
  - Sinusitis [Recovered/Resolved]
  - Pneumonia [Unknown]
